FAERS Safety Report 4405588-2 (Version None)
Quarter: 2004Q3

REPORT INFORMATION
  Report Type: 
  Country: None (occurrence: None)
  Receive Date: 20040723
  Receipt Date: 20031008
  Transmission Date: 20050211
  Serious: No
  Sender: FDA-Public Use
  Company Number: US-GLAXOSMITHKLINE-A0429528A

PATIENT
  Age: 62 Year
  Sex: Female

DRUGS (10)
  1. AVANDIA [Suspect]
     Dosage: 4MG PER DAY
     Route: 048
  2. POTASSIUM [Concomitant]
  3. GLIPIZIDE [Concomitant]
  4. GEMFIBROZIL [Concomitant]
  5. LASIX [Concomitant]
  6. ATENOLOL [Concomitant]
  7. PRIMIDONE [Concomitant]
  8. ESTRADIOL [Concomitant]
  9. NITROGLYCERIN [Concomitant]
  10. ENALAPRIL MALEATE [Concomitant]

REACTIONS (1)
  - ASTHENIA [None]
